FAERS Safety Report 18908514 (Version 1)
Quarter: 2021Q1

REPORT INFORMATION
  Report Type: Spontaneous
  Country: US (occurrence: US)
  Receive Date: 20210218
  Receipt Date: 20210218
  Transmission Date: 20210420
  Serious: No
  Sender: FDA-Public Use
  Company Number: US-SUN PHARMACEUTICAL INDUSTRIES LTD-2021R1-276923

PATIENT

DRUGS (1)
  1. BYNFEZIA PEN [Suspect]
     Active Substance: OCTREOTIDE ACETATE
     Indication: SERUM SEROTONIN INCREASED
     Dosage: UNK
     Route: 065

REACTIONS (2)
  - Flatulence [Unknown]
  - Diarrhoea [Unknown]
